FAERS Safety Report 7477574-X (Version None)
Quarter: 2011Q2

REPORT INFORMATION
  Report Type: 
  Country: None (occurrence: None)
  Receive Date: 20110513
  Receipt Date: 20110505
  Transmission Date: 20111010
  Serious: Yes (Hospitalization)
  Sender: FDA-Public Use
  Company Number: US-JNJFOC-20110503814

PATIENT
  Sex: Female
  Weight: 99.79 kg

DRUGS (7)
  1. LEVAQUIN [Suspect]
     Indication: ABDOMINAL ABSCESS
     Dosage: FOR 9 DAYS
     Route: 048
     Dates: start: 20090601, end: 20090901
  2. LEVAQUIN [Suspect]
     Route: 048
     Dates: start: 20090601, end: 20090901
  3. LEVAQUIN [Suspect]
     Indication: PNEUMONIA
     Dosage: FOR 9 DAYS
     Route: 048
     Dates: start: 20090601, end: 20090901
  4. LEVAQUIN [Suspect]
     Route: 048
     Dates: start: 20090601, end: 20090901
  5. HYPERTENSION MEDICATION [Concomitant]
     Indication: HYPERTENSION
     Route: 048
  6. CHOLESTEROL MEDICATION [Concomitant]
     Indication: BLOOD CHOLESTEROL INCREASED
     Route: 048
  7. PROZAC [Concomitant]
     Route: 048

REACTIONS (3)
  - ABDOMINAL ABSCESS [None]
  - TENDONITIS [None]
  - BURSITIS [None]
